FAERS Safety Report 19835462 (Version 4)
Quarter: 2021Q4

REPORT INFORMATION
  Report Type: Report from Study
  Country: JP (occurrence: JP)
  Receive Date: 20210915
  Receipt Date: 20211118
  Transmission Date: 20220303
  Serious: Yes (Life-Threatening, Hospitalization, Other)
  Sender: FDA-Public Use
  Company Number: JP-ONO-2018JP029468

PATIENT
  Age: 64 Year
  Sex: Female
  Weight: 54.2 kg

DRUGS (14)
  1. BRAFTOVI [Suspect]
     Active Substance: ENCORAFENIB
     Indication: Malignant melanoma
     Dosage: 450 MG, EVERY DAY
     Route: 048
     Dates: start: 20190318, end: 20190319
  2. BRAFTOVI [Suspect]
     Active Substance: ENCORAFENIB
     Dosage: 900 MG
     Route: 048
  3. BRAFTOVI [Suspect]
     Active Substance: ENCORAFENIB
     Dosage: 900 MG
     Route: 048
  4. BRAFTOVI [Suspect]
     Active Substance: ENCORAFENIB
     Dosage: 900 MG
     Route: 048
  5. MEKTOVI [Suspect]
     Active Substance: BINIMETINIB
     Indication: Malignant melanoma
     Dosage: 90 MG, EVERY DAY
     Route: 048
     Dates: start: 20190318, end: 20190319
  6. MEKTOVI [Suspect]
     Active Substance: BINIMETINIB
     Dosage: 180 MG
     Route: 048
  7. MEKTOVI [Suspect]
     Active Substance: BINIMETINIB
     Dosage: 180 MG
     Route: 048
  8. MEKTOVI [Suspect]
     Active Substance: BINIMETINIB
     Dosage: 180 MG
     Route: 048
  9. OPDIVO [Suspect]
     Active Substance: NIVOLUMAB
     Indication: Malignant melanoma
     Dosage: UNK, (UNK MG)
     Route: 041
     Dates: start: 20180522, end: 20181016
  10. OPDIVO [Suspect]
     Active Substance: NIVOLUMAB
     Dosage: 80 MG
     Route: 041
     Dates: start: 20181106, end: 20190108
  11. YERVOY [Suspect]
     Active Substance: IPILIMUMAB
     Indication: Malignant melanoma
     Dosage: 167.20 MG
     Route: 041
     Dates: start: 20181106, end: 20190108
  12. DEXTROMETHORPHAN HYDROBROMIDE [Concomitant]
     Active Substance: DEXTROMETHORPHAN HYDROBROMIDE
     Indication: Cough
     Dosage: 15 MG, Q8H
     Route: 048
     Dates: start: 20190108, end: 20190115
  13. DABRAFENIB MESYLATE [Concomitant]
     Active Substance: DABRAFENIB MESYLATE
     Indication: Malignant melanoma
     Dosage: UNK
     Route: 065
  14. TRAMETINIB DIMETHYL SULFOXIDE [Concomitant]
     Active Substance: TRAMETINIB DIMETHYL SULFOXIDE
     Indication: Malignant melanoma
     Dosage: UNK
     Route: 065

REACTIONS (9)
  - Disseminated intravascular coagulation [Recovering/Resolving]
  - Haemophagocytic lymphohistiocytosis [Recovering/Resolving]
  - Abdominal wall haematoma [Recovering/Resolving]
  - Detachment of retinal pigment epithelium [Recovered/Resolved]
  - Serous retinal detachment [Unknown]
  - Pancytopenia [Unknown]
  - Influenza [Unknown]
  - Urinary tract infection [Unknown]
  - Blood lactate dehydrogenase increased [Recovering/Resolving]

NARRATIVE: CASE EVENT DATE: 20190115
